FAERS Safety Report 10393999 (Version 5)
Quarter: 2014Q4

REPORT INFORMATION
  Report Type: Report from Study
  Country: ES (occurrence: ES)
  Receive Date: 20140819
  Receipt Date: 20141224
  Transmission Date: 20150528
  Serious: Yes (Other)
  Sender: FDA-Public Use
  Company Number: ES-ASTRAZENECA-2014SE46423

PATIENT
  Age: 21175 Day
  Sex: Male
  Weight: 85 kg

DRUGS (10)
  1. BISOPROLOL [Concomitant]
     Active Substance: BISOPROLOL
     Indication: HYPERTENSION
     Dosage: TOTAL DAILY DOSE 5 MEQ
     Route: 048
     Dates: start: 20140403
  2. HEMOVAS [Concomitant]
     Indication: INTERMITTENT CLAUDICATION
     Dosage: TOTAL DAILY DOSE 1200 MG
     Route: 048
     Dates: start: 19980715
  3. PANTOPRAZOLE [Concomitant]
     Active Substance: PANTOPRAZOLE SODIUM
     Indication: GASTRITIS PROPHYLAXIS
     Dosage: TOTAL DAILY DOSE 40 MG
     Route: 048
     Dates: start: 19980715
  4. AZD6140 CODE NOT BROKEN [Suspect]
     Active Substance: TICAGRELOR
     Indication: PERIPHERAL ARTERIAL OCCLUSIVE DISEASE
     Route: 048
     Dates: start: 20130530, end: 20140402
  5. ELECOR [Concomitant]
     Active Substance: EPLERENONE
     Indication: HYPERTENSION
     Dosage: TOTAL DAILY DOSE 25 MG
     Route: 048
     Dates: start: 20140403
  6. ROSUVASTATIN [Suspect]
     Active Substance: ROSUVASTATIN
     Indication: HYPERCHOLESTEROLAEMIA
     Dosage: TOTAL DAILY DOSE 20 MG
     Route: 048
     Dates: start: 20140403
  7. TRANGOREX [Concomitant]
     Active Substance: AMIODARONE HYDROCHLORIDE
     Indication: ARRHYTHMIA
     Dosage: TOTAL DAILY DOSE 200 MEQ
     Route: 048
     Dates: start: 19980715
  8. SINTROM [Concomitant]
     Active Substance: ACENOCOUMAROL
     Indication: ANTICOAGULANT THERAPY
     Dosage: TOTAL DAILY DOSE 4 MG
     Route: 048
     Dates: start: 20140403
  9. CRINOREN [Concomitant]
     Indication: HYPERTENSION
     Dosage: TOTAL DAILY DOSE 20 MG
     Route: 048
     Dates: start: 19970615
  10. JANUVIA [Concomitant]
     Active Substance: SITAGLIPTIN PHOSPHATE
     Indication: HYPERGLYCAEMIA
     Dosage: TOTAL DAILY DOSE 100 MG
     Route: 048
     Dates: start: 20140403

REACTIONS (1)
  - Supraventricular tachycardia [Recovered/Resolved]

NARRATIVE: CASE EVENT DATE: 20140517
